FAERS Safety Report 25772208 (Version 2)
Quarter: 2025Q3

REPORT INFORMATION
  Report Type: Spontaneous
  Country: US (occurrence: US)
  Receive Date: 20250908
  Receipt Date: 20250921
  Transmission Date: 20251020
  Serious: Yes (Hospitalization)
  Sender: TEVA
  Company Number: US-TEVA-VS-3368462

PATIENT
  Age: 89 Year
  Sex: Female

DRUGS (1)
  1. PREDNISONE [Suspect]
     Active Substance: PREDNISONE
     Indication: Pain
     Dosage: LOW DOSE
     Route: 065

REACTIONS (3)
  - Herpes zoster disseminated [Recovering/Resolving]
  - Encephalitis herpes [Recovering/Resolving]
  - Immunosuppression [Recovering/Resolving]
